FAERS Safety Report 20192191 (Version 2)
Quarter: 2022Q3

REPORT INFORMATION
  Report Type: Spontaneous
  Country: US (occurrence: US)
  Receive Date: 20211216
  Receipt Date: 20220809
  Transmission Date: 20221026
  Serious: Yes (Other)
  Sender: FDA-Public Use
  Company Number: US-SA-SAC20211213000019

PATIENT
  Age: 61 Year

DRUGS (3)
  1. ZANTAC [Suspect]
     Active Substance: RANITIDINE HYDROCHLORIDE
     Indication: Dyspepsia
     Dosage: 75 MG, QD
     Route: 048
     Dates: start: 20120101, end: 20190101
  2. ZANTAC [Suspect]
     Active Substance: RANITIDINE HYDROCHLORIDE
     Indication: Gastrooesophageal reflux disease
  3. ZANTAC [Suspect]
     Active Substance: RANITIDINE HYDROCHLORIDE
     Indication: Hyperchlorhydria

REACTIONS (5)
  - Lung carcinoma cell type unspecified stage I [Unknown]
  - Pain [Unknown]
  - Anxiety [Unknown]
  - Disability [Unknown]
  - Anhedonia [Unknown]

NARRATIVE: CASE EVENT DATE: 20160301
